FAERS Safety Report 7651497-5 (Version None)
Quarter: 2011Q3

REPORT INFORMATION
  Report Type: 
  Country: None (occurrence: None)
  Receive Date: 20110802
  Receipt Date: 20110725
  Transmission Date: 20111222
  Serious: Yes (Other)
  Sender: FDA-Public Use
  Company Number: PHFR2011GB00666

PATIENT
  Sex: Female

DRUGS (1)
  1. CLOZAPINE [Suspect]
     Indication: SCHIZOPHRENIA
     Dosage: 250 MG/DAY
     Route: 048
     Dates: start: 20031110, end: 20110113

REACTIONS (2)
  - RED BLOOD CELL COUNT ABNORMAL [None]
  - OROPHARYNGEAL PAIN [None]
